FAERS Safety Report 18001050 (Version 1)
Quarter: 2020Q3

REPORT INFORMATION
  Report Type: Spontaneous
  Country: CA (occurrence: CA)
  Receive Date: 20200709
  Receipt Date: 20200709
  Transmission Date: 20201103
  Serious: Yes (Life-Threatening)
  Sender: FDA-Public Use
  Company Number: CA-TEVA-2020-CA-1797736

PATIENT
  Age: 4 Year
  Sex: Female
  Weight: 16 kg

DRUGS (41)
  1. BUSULFAN. [Suspect]
     Active Substance: BUSULFAN
     Route: 042
  2. AMLODIPINE [Concomitant]
     Active Substance: AMLODIPINE BESYLATE
  3. LORAZEPAM. [Concomitant]
     Active Substance: LORAZEPAM
  4. NIFEDIPINE. [Concomitant]
     Active Substance: NIFEDIPINE
  5. PREDNISONE. [Concomitant]
     Active Substance: PREDNISONE
  6. TOBRAMYCIN. [Concomitant]
     Active Substance: TOBRAMYCIN
  7. BUSULFAN. [Suspect]
     Active Substance: BUSULFAN
     Route: 042
  8. BETAMETHASONE. [Concomitant]
     Active Substance: BETAMETHASONE
  9. CLOTRIMAZOLE. [Concomitant]
     Active Substance: CLOTRIMAZOLE
  10. MAGNESIUM [Concomitant]
     Active Substance: MAGNESIUM
  11. POLYETHYLENE GLYCOL [Concomitant]
     Active Substance: POLYETHYLENE GLYCOLS
  12. BUSULFAN. [Suspect]
     Active Substance: BUSULFAN
     Route: 042
  13. EPINEPHRINE. [Concomitant]
     Active Substance: EPINEPHRINE
  14. MORPHINE SULFATE INJ USP [Concomitant]
     Active Substance: MORPHINE SULFATE
  15. RANITIDINE. [Concomitant]
     Active Substance: RANITIDINE
  16. ACETAMINOPHEN. [Concomitant]
     Active Substance: ACETAMINOPHEN
  17. DIPHENHYDRAMINE. [Concomitant]
     Active Substance: DIPHENHYDRAMINE
  18. LEVETIRACETAM. [Concomitant]
     Active Substance: LEVETIRACETAM
  19. PIPERACILLIN AND TAZOBACTAM [Concomitant]
     Active Substance: PIPERACILLIN SODIUM\TAZOBACTAM SODIUM
  20. ALTEPLASE. [Concomitant]
     Active Substance: ALTEPLASE
  21. CALCIUM 600 MG WITH VITAMIN D 400 IU TABLETS [Concomitant]
  22. RITUXAN [Suspect]
     Active Substance: RITUXIMAB
     Indication: ACUTE LYMPHOCYTIC LEUKAEMIA
     Route: 042
  23. CEFTAZIDIME. [Concomitant]
     Active Substance: CEFTAZIDIME
  24. CHLORHEXIDINE [Concomitant]
     Active Substance: CHLORHEXIDINE
  25. DEXAMETHASONE. [Concomitant]
     Active Substance: DEXAMETHASONE
  26. ONDANSETRON [Concomitant]
     Active Substance: ONDANSETRON
  27. TRIMETHOPRIM SULFAMETHOXAZOLE [Concomitant]
     Active Substance: SULFAMETHOXAZOLE\TRIMETHOPRIM
  28. FLUDARABINE [Suspect]
     Active Substance: FLUDARABINE PHOSPHATE
     Indication: ACUTE LYMPHOCYTIC LEUKAEMIA
     Route: 042
  29. BUSULFAN. [Suspect]
     Active Substance: BUSULFAN
     Indication: ACUTE LYMPHOCYTIC LEUKAEMIA
     Route: 042
  30. CYCLOSPORINE. [Concomitant]
     Active Substance: CYCLOSPORINE
  31. DIMENHYDRINATE. [Concomitant]
     Active Substance: DIMENHYDRINATE
  32. FLUCONAZOLE. [Concomitant]
     Active Substance: FLUCONAZOLE
  33. FUROSEMIDE. [Concomitant]
     Active Substance: FUROSEMIDE
  34. HEPARIN CALCIUM [Concomitant]
     Active Substance: HEPARIN CALCIUM
  35. METOCLOPRAMIDE. [Concomitant]
     Active Substance: METOCLOPRAMIDE
  36. METHOTREXATE. [Suspect]
     Active Substance: METHOTREXATE
     Indication: ACUTE LYMPHOCYTIC LEUKAEMIA
     Route: 042
  37. RITUXAN [Suspect]
     Active Substance: RITUXIMAB
     Route: 042
  38. THIOTEPA. [Suspect]
     Active Substance: THIOTEPA
     Indication: ACUTE LYMPHOCYTIC LEUKAEMIA
     Route: 042
  39. FAMCICLOVIR. [Concomitant]
     Active Substance: FAMCICLOVIR
  40. TRANEXAMIC ACID. [Concomitant]
     Active Substance: TRANEXAMIC ACID
  41. VANCOMYCIN [Concomitant]
     Active Substance: VANCOMYCIN

REACTIONS (3)
  - Bacteraemia [Unknown]
  - Aplastic anaemia [Unknown]
  - Epstein-Barr virus infection [Unknown]
